FAERS Safety Report 21479638 (Version 1)
Quarter: 2022Q4

REPORT INFORMATION
  Report Type: Spontaneous
  Country: US (occurrence: US)
  Receive Date: 20221019
  Receipt Date: 20221019
  Transmission Date: 20230113
  Serious: Yes (Other)
  Sender: FDA-Public Use
  Company Number: US-AMGEN-USASP2022177285

PATIENT

DRUGS (3)
  1. BEVACIZUMAB [Suspect]
     Active Substance: BEVACIZUMAB
     Indication: Macular degeneration
     Dosage: UNK
  2. BEVACIZUMAB [Suspect]
     Active Substance: BEVACIZUMAB
     Indication: Diabetic retinal oedema
  3. BEVACIZUMAB [Suspect]
     Active Substance: BEVACIZUMAB
     Indication: Age-related macular degeneration

REACTIONS (4)
  - Bacterial endophthalmitis [Not Recovered/Not Resolved]
  - Choroidal detachment [Unknown]
  - Retinal detachment [Unknown]
  - Off label use [Unknown]
